FAERS Safety Report 25654703 (Version 1)
Quarter: 2025Q3

REPORT INFORMATION
  Report Type: Spontaneous
  Country: TW (occurrence: TW)
  Receive Date: 20250807
  Receipt Date: 20250807
  Transmission Date: 20251021
  Serious: Yes (Other)
  Sender: MERCK SHARP & DOHME LLC
  Company Number: TW-009507513-2315303

PATIENT
  Age: 57 Year
  Sex: Female
  Weight: 49.5 kg

DRUGS (6)
  1. PEMBROLIZUMAB [Suspect]
     Active Substance: PEMBROLIZUMAB
     Indication: Breast cancer
     Dosage: Q3WX8
     Dates: start: 20220509
  2. PEMBROLIZUMAB [Suspect]
     Active Substance: PEMBROLIZUMAB
     Indication: Breast cancer
     Dosage: ADJUVANT KEYTRUDA Q3W X9, 2ND
     Dates: start: 20221219
  3. DOCETAXEL [Suspect]
     Active Substance: DOCETAXEL
     Indication: Breast cancer
     Dosage: 75MG/M2 Q3W X4
     Dates: start: 20220509
  4. CARBOPLATIN [Suspect]
     Active Substance: CARBOPLATIN
     Indication: Breast cancer
     Dosage: 5 AREA UNDER THE CURVE (AUC) Q3W X4
     Dates: start: 20220509
  5. EPIRUBICIN [Suspect]
     Active Substance: EPIRUBICIN
     Indication: Breast cancer
     Dosage: 90MG/M2 Q3W X4
     Dates: start: 20220801
  6. CYCLOPHOSPHAMIDE [Suspect]
     Active Substance: CYCLOPHOSPHAMIDE
     Indication: Breast cancer
     Dosage: 600MG/M2 Q3W X4
     Dates: start: 20220802

REACTIONS (5)
  - Hypothyroidism [Unknown]
  - Breast conserving surgery [Unknown]
  - Fatigue [Unknown]
  - Radiotherapy [Unknown]
  - Radiotherapy [Unknown]

NARRATIVE: CASE EVENT DATE: 20221109
